FAERS Safety Report 11114712 (Version 2)
Quarter: 2015Q3

REPORT INFORMATION
  Report Type: Spontaneous
  Country: US (occurrence: US)
  Receive Date: 20150515
  Receipt Date: 20150810
  Transmission Date: 20151125
  Serious: No
  Sender: FDA-Public Use
  Company Number: US-ASTRAZENECA-2015SE42136

PATIENT
  Age: 26506 Day
  Sex: Female
  Weight: 75 kg

DRUGS (6)
  1. SHINGLES [Concomitant]
  2. OMEPRAZOLE. [Suspect]
     Active Substance: OMEPRAZOLE
     Indication: DYSPEPSIA
     Route: 048
     Dates: start: 2009
  3. PREVNAR [Suspect]
     Active Substance: PNEUMOCOCCAL 7-VALENT CONJUGATE VACCINE (DIPHTHERIA CRM197 PROTEIN)
     Dosage: 1 TIME APPLICATION
     Route: 065
     Dates: start: 20150219, end: 20150219
  4. OMEPRAZOLE. [Suspect]
     Active Substance: OMEPRAZOLE
     Indication: HERNIA
     Route: 048
     Dates: start: 2009
  5. ADVIL [Concomitant]
     Active Substance: IBUPROFEN
  6. RECLAST [Concomitant]
     Active Substance: ZOLEDRONIC ACID
     Dates: start: 20150210, end: 20150210

REACTIONS (3)
  - Movement disorder [Unknown]
  - Pain in extremity [Not Recovered/Not Resolved]
  - Injection site pain [Unknown]

NARRATIVE: CASE EVENT DATE: 20150221
